FAERS Safety Report 4874594-6 (Version None)
Quarter: 2006Q1

REPORT INFORMATION
  Report Type: 
  Country: None (occurrence: None)
  Receive Date: 20060106
  Receipt Date: 20060103
  Transmission Date: 20060701
  Serious: Yes (Disabling)
  Sender: FDA-Public Use
  Company Number: GB-MERCK-0601GBR00011

PATIENT
  Age: 61 Year
  Sex: Male
  Weight: 101 kg

DRUGS (5)
  1. SINGULAIR [Suspect]
     Indication: RHINITIS ALLERGIC
     Route: 048
     Dates: start: 20041208, end: 20051108
  2. PSEUDOEPHEDRINE [Concomitant]
     Indication: RHINITIS
     Route: 048
     Dates: start: 20031027, end: 20051108
  3. LORATADINE [Concomitant]
     Indication: RHINITIS
     Route: 048
     Dates: start: 20000803
  4. CHLORPHENIRAMINE MALEATE [Concomitant]
     Indication: RHINITIS
     Route: 048
     Dates: start: 20010322
  5. PSYLLIUM HUSK [Concomitant]
     Indication: CONSTIPATION
     Route: 048
     Dates: start: 19990601

REACTIONS (2)
  - DEPRESSION [None]
  - PARKINSON'S DISEASE [None]
